FAERS Safety Report 19789056 (Version 1)
Quarter: 2021Q3

REPORT INFORMATION
  Report Type: Spontaneous
  Country: US (occurrence: US)
  Receive Date: 20210905
  Receipt Date: 20210905
  Transmission Date: 20211014
  Serious: Yes (Other)
  Sender: FDA-Public Use
  Company Number: US-TEVA-2021-US-1948754

PATIENT
  Age: 39 Year

DRUGS (3)
  1. GRANIX [Suspect]
     Active Substance: TBO-FILGRASTIM
     Dosage: DAILY PRN
     Route: 065
     Dates: start: 20210827
  2. GRANIX [Suspect]
     Active Substance: TBO-FILGRASTIM
     Dosage: 480 MILLIGRAM DAILY;
     Route: 065
     Dates: start: 20210807
  3. GRANIX [Suspect]
     Active Substance: TBO-FILGRASTIM
     Indication: ACUTE LYMPHOCYTIC LEUKAEMIA
     Dosage: 480 MICROGRAM DAILY;
     Route: 065
     Dates: start: 20210804

REACTIONS (2)
  - Off label use [Unknown]
  - Neutrophil count abnormal [Unknown]

NARRATIVE: CASE EVENT DATE: 202108
